FAERS Safety Report 5333385-2 (Version None)
Quarter: 2007Q2

REPORT INFORMATION
  Report Type: 
  Country: None (occurrence: None)
  Receive Date: 20070524
  Receipt Date: 20070516
  Transmission Date: 20071010
  Serious: Yes (Death, Hospitalization)
  Sender: FDA-Public Use
  Company Number: GB-ROCHE-489959

PATIENT
  Age: 69 Year
  Sex: Male
  Weight: 72 kg

DRUGS (3)
  1. CAPECITABINE [Suspect]
     Dosage: DOSE REPORTED AS 2150. 1250 MG/M2/DAY IN TWO DIVIDED DOSES OR 625 MG/M2 TWICE DAILY.
     Route: 048
     Dates: start: 20061017, end: 20061127
  2. CISPLATIN [Suspect]
     Dosage: GIVEN ON DAY ONE OF A THREE WEEK CYCLE.
     Route: 042
     Dates: start: 20061017, end: 20061127
  3. EPIRUBICIN [Suspect]
     Dosage: GIVEN ON DAY ONE OF EACH THREE WEEK CYCLE. THE PATIENT HAD TWO CYCLES OF EPIRUBICIN.
     Route: 042
     Dates: start: 20061017, end: 20061127

REACTIONS (2)
  - BRONCHOPNEUMONIA [None]
  - CEREBRAL HAEMORRHAGE [None]
